FAERS Safety Report 8815991 (Version 1)
Quarter: 2012Q4

REPORT INFORMATION
  Report Type: 
  Country: US (occurrence: US)
  Receive Date: 20120928
  Receipt Date: 20120928
  Transmission Date: 20130627
  Serious: No
  Sender: FDA-Public Use
  Company Number: US-VIIV HEALTHCARE LIMITED-A0960417A

PATIENT
  Age: 49 Year
  Sex: Male

DRUGS (4)
  1. EPZICOM [Suspect]
     Indication: HIV INFECTION
     Dosage: 1TAB Per day
     Route: 048
  2. NORVIR [Concomitant]
  3. UNKNOWN MEDICATION [Concomitant]
  4. CHANTIX [Concomitant]

REACTIONS (1)
  - Alcohol poisoning [Unknown]
